FAERS Safety Report 7739814-9 (Version None)
Quarter: 2011Q3

REPORT INFORMATION
  Report Type: 
  Country: None (occurrence: None)
  Receive Date: 20110909
  Receipt Date: 20110826
  Transmission Date: 20111222
  Serious: Yes (Other)
  Sender: FDA-Public Use
  Company Number: PHHY2011DE79754

PATIENT
  Sex: Female
  Weight: 81 kg

DRUGS (4)
  1. ASPIRIN [Concomitant]
     Dosage: 100 MG, UNK
     Route: 048
  2. RAMIPRIL [Concomitant]
     Dosage: 50 MG, UNK
     Route: 048
  3. SANDOSTATIN LAR [Suspect]
     Indication: ACROMEGALY
     Dosage: 10 MG, QMO
     Route: 030
     Dates: start: 20090201
  4. METOPROLOL SUCCINATE [Concomitant]
     Route: 048

REACTIONS (1)
  - EYE HAEMORRHAGE [None]
